FAERS Safety Report 18583716 (Version 1)
Quarter: 2020Q4

REPORT INFORMATION
  Report Type: Spontaneous
  Country: JP (occurrence: JP)
  Receive Date: 20201207
  Receipt Date: 20201207
  Transmission Date: 20210114
  Serious: Yes (Death)
  Sender: FDA-Public Use
  Company Number: JP-SPECGX-T202002328

PATIENT
  Age: 55 Year
  Sex: Female

DRUGS (4)
  1. MORPHINE HYDROCHLORIDE TRIHYDRATE [Concomitant]
     Active Substance: MORPHINE HYDROCHLORIDE
     Indication: CANCER PAIN
     Dosage: 2.4 MILLIGRAM, QD
     Route: 029
  2. METHADONE [Suspect]
     Active Substance: METHADONE HYDROCHLORIDE
     Indication: CANCER PAIN
     Dosage: 75 MILLIGRAM
     Route: 048
  3. METHADONE [Suspect]
     Active Substance: METHADONE HYDROCHLORIDE
     Dosage: 30 MILLIGRAM
     Route: 048
  4. OXYCODONE HYDROCHLORIDE TRIHYDRATE. [Concomitant]
     Active Substance: OXYCODONE HYDROCHLORIDE TRIHYDRATE
     Indication: CANCER PAIN
     Dosage: 480 MILLIGRAM, QD
     Route: 042

REACTIONS (3)
  - Somnolence [Recovering/Resolving]
  - Bone cancer [Fatal]
  - Condition aggravated [Fatal]
